FAERS Safety Report 4506722-6 (Version None)
Quarter: 2004Q4

REPORT INFORMATION
  Report Type: 
  Country: None (occurrence: None)
  Receive Date: 20041117
  Receipt Date: 20041102
  Transmission Date: 20050328
  Serious: Yes (Life-Threatening, Hospitalization, Disabling)
  Sender: FDA-Public Use
  Company Number: PHO-2004-005

PATIENT
  Sex: Male

DRUGS (7)
  1. PHOTOFRIN [Suspect]
     Indication: BILIARY ADENOMA
     Dosage: 2MG/KG INTRAVENOUS
     Route: 042
     Dates: start: 20040622
  2. TACROLIMUS [Concomitant]
  3. URSODIOL [Concomitant]
  4. CACO3 [Concomitant]
  5. ALENDRONATE SODIUM [Concomitant]
  6. PYRIDOXINE [Concomitant]
  7. FOLIC ACID [Concomitant]

REACTIONS (1)
  - IDIOPATHIC THROMBOCYTOPENIC PURPURA [None]
